FAERS Safety Report 8599601-9 (Version None)
Quarter: 2012Q3

REPORT INFORMATION
  Report Type: 
  Country: None (occurrence: None)
  Receive Date: 20120816
  Receipt Date: 20120810
  Transmission Date: 20120928
  Serious: Yes (Other)
  Sender: FDA-Public Use
  Company Number: US-PFIZER INC-2012196067

PATIENT

DRUGS (1)
  1. RELPAX [Suspect]
     Dosage: UNK

REACTIONS (8)
  - VITREOUS FLOATERS [None]
  - HEADACHE [None]
  - FEAR OF DEATH [None]
  - EYE DISORDER [None]
  - CEREBROVASCULAR ACCIDENT [None]
  - DISTURBANCE IN ATTENTION [None]
  - MIGRAINE [None]
  - CEREBRAL THROMBOSIS [None]
